FAERS Safety Report 6422458-9 (Version None)
Quarter: 2009Q4

REPORT INFORMATION
  Report Type: 
  Country: None (occurrence: None)
  Receive Date: 20091030
  Receipt Date: 20091020
  Transmission Date: 20100525
  Serious: Yes (Hospitalization)
  Sender: FDA-Public Use
  Company Number: DE-AMGEN-US369531

PATIENT
  Sex: Female

DRUGS (5)
  1. ENBREL [Suspect]
     Indication: PSORIASIS
     Route: 058
     Dates: start: 20080601, end: 20090801
  2. ENBREL [Suspect]
     Indication: PSORIATIC ARTHROPATHY
  3. MEDROXYPROGESTERONE ACETATE [Concomitant]
     Route: 048
  4. ACETAMINOPHEN [Concomitant]
     Dosage: UNKNOWN
     Route: 048
  5. ESTRADIOL VALERATE [Concomitant]
     Route: 048

REACTIONS (8)
  - APHASIA [None]
  - CEREBRAL ARTERITIS [None]
  - CEREBRAL HAEMORRHAGE [None]
  - FIBROMUSCULAR DYSPLASIA [None]
  - PARTIAL SEIZURES [None]
  - PLEOCYTOSIS [None]
  - SUBARACHNOID HAEMORRHAGE [None]
  - VASOSPASM [None]
